FAERS Safety Report 14372937 (Version 4)
Quarter: 2018Q2

REPORT INFORMATION
  Report Type: Spontaneous
  Country: US (occurrence: US)
  Receive Date: 20180110
  Receipt Date: 20180516
  Transmission Date: 20180711
  Serious: No
  Sender: FDA-Public Use
  Company Number: US-MERZ NORTH AMERICA, INC.-18MRZ-00013

PATIENT
  Sex: Female

DRUGS (2)
  1. XEOMIN [Suspect]
     Active Substance: INCOBOTULINUMTOXINA
     Indication: SKIN WRINKLING
     Dosage: 22 IU
     Dates: start: 20170717, end: 20170717
  2. XEOMIN [Suspect]
     Active Substance: INCOBOTULINUMTOXINA
     Indication: SKIN COSMETIC PROCEDURE
     Dosage: 2 UNITS
     Dates: start: 20170802, end: 20170802

REACTIONS (8)
  - Urinary incontinence [Unknown]
  - Eye swelling [Unknown]
  - Eyelid oedema [Unknown]
  - Dark circles under eyes [Unknown]
  - Vision blurred [Unknown]
  - Brow ptosis [Unknown]
  - Eye complication associated with device [Unknown]
  - Eyelid ptosis [Unknown]
